FAERS Safety Report 11320573 (Version 1)
Quarter: 2015Q3

REPORT INFORMATION
  Report Type: Spontaneous
  Country: US (occurrence: None)
  Receive Date: 20150728
  Receipt Date: 20150728
  Transmission Date: 20151125
  Serious: Yes (Hospitalization)
  Sender: FDA-Public Use
  Company Number: None

PATIENT
  Age: 81 Year
  Sex: Male
  Weight: 87.8 kg

DRUGS (1)
  1. LIDOCAINE. [Suspect]
     Active Substance: LIDOCAINE
     Indication: LOCAL ANAESTHESIA
     Dosage: 80 MG  OTHER  IV
     Route: 042
     Dates: start: 20140703, end: 20140703

REACTIONS (2)
  - Hypoaesthesia [None]
  - Asthenia [None]

NARRATIVE: CASE EVENT DATE: 20140703
